FAERS Safety Report 15344403 (Version 1)
Quarter: 2018Q3

REPORT INFORMATION
  Report Type: Spontaneous
  Country: JP (occurrence: JP)
  Receive Date: 20180903
  Receipt Date: 20180903
  Transmission Date: 20181010
  Serious: Yes (Hospitalization, Other)
  Sender: FDA-Public Use
  Company Number: JP-PFIZER INC-2018317656

PATIENT
  Age: 69 Year
  Sex: Female

DRUGS (1)
  1. IBRANCE [Suspect]
     Active Substance: PALBOCICLIB
     Indication: BREAST CANCER RECURRENT
     Dosage: UNK

REACTIONS (5)
  - Platelet count decreased [Unknown]
  - Pyrexia [Unknown]
  - Pharyngitis [Unknown]
  - Neutrophil count decreased [Unknown]
  - Dehydration [Unknown]
